FAERS Safety Report 14525321 (Version 1)
Quarter: 2018Q1

REPORT INFORMATION
  Report Type: Spontaneous
  Country: NO (occurrence: NO)
  Receive Date: 20180213
  Receipt Date: 20180213
  Transmission Date: 20180509
  Serious: Yes (Hospitalization)
  Sender: FDA-Public Use
  Company Number: NO-ASTRAZENECA-2018SE14700

PATIENT
  Age: 15 Year
  Sex: Female

DRUGS (6)
  1. TRUXAL [Concomitant]
     Active Substance: CHLORPROTHIXENE
     Dosage: 25 MG, 0-3 TIMES DAILY
     Route: 048
     Dates: end: 20170721
  2. ZYPREXA [Concomitant]
     Active Substance: OLANZAPINE
     Route: 048
     Dates: end: 20170809
  3. SEROQUEL [Suspect]
     Active Substance: QUETIAPINE FUMARATE
     Indication: BIPOLAR DISORDER
     Route: 048
     Dates: start: 201708, end: 20171207
  4. SEROQUEL [Suspect]
     Active Substance: QUETIAPINE FUMARATE
     Indication: BIPOLAR DISORDER
     Dosage: DOSAGE GRADUALLY DECREASED
     Route: 048
     Dates: start: 20171208, end: 20171222
  5. SEROQUEL [Suspect]
     Active Substance: QUETIAPINE FUMARATE
     Indication: BIPOLAR DISORDER
     Route: 048
     Dates: start: 201704, end: 201708
  6. MELATONIN [Concomitant]
     Active Substance: MELATONIN
     Dosage: 3.0MG UNKNOWN
     Route: 048

REACTIONS (1)
  - Type 1 diabetes mellitus [Recovered/Resolved with Sequelae]

NARRATIVE: CASE EVENT DATE: 201712
